FAERS Safety Report 16830369 (Version 1)
Quarter: 2019Q3

REPORT INFORMATION
  Report Type: Spontaneous
  Country: US (occurrence: US)
  Receive Date: 20190920
  Receipt Date: 20190920
  Transmission Date: 20191005
  Serious: No
  Sender: FDA-Public Use
  Company Number: US-BRISTOL-MYERS SQUIBB COMPANY-BMS-2019-089407

PATIENT
  Sex: Female

DRUGS (1)
  1. ELIQUIS [Suspect]
     Active Substance: APIXABAN
     Indication: PRODUCT USED FOR UNKNOWN INDICATION
     Dosage: DOSE IS HALF A 2.5MG TABLET IN THE MORNING AND THE OTHER HALF AT NIGHT BID
     Route: 048

REACTIONS (2)
  - Wrong technique in product usage process [Unknown]
  - Melanocytic naevus [Unknown]
